FAERS Safety Report 7809556-X (Version None)
Quarter: 2011Q4

REPORT INFORMATION
  Report Type: 
  Country: None (occurrence: None)
  Receive Date: 20111012
  Receipt Date: 20111004
  Transmission Date: 20120403
  Serious: Yes (Hospitalization)
  Sender: FDA-Public Use
  Company Number: PHHY2011ZA88429

PATIENT
  Age: 26 Year
  Sex: Female

DRUGS (2)
  1. RITALIN [Suspect]
     Indication: DEPRESSED MOOD
     Dosage: 400 MG, DAILY
     Dates: start: 20110701, end: 20110901
  2. RITALIN [Suspect]
     Dosage: 80 MG, DAILY

REACTIONS (2)
  - PSYCHOMOTOR HYPERACTIVITY [None]
  - INSOMNIA [None]
